FAERS Safety Report 8325503-9 (Version None)
Quarter: 2012Q2

REPORT INFORMATION
  Report Type: 
  Country: None (occurrence: None)
  Receive Date: 20120427
  Receipt Date: 20120412
  Transmission Date: 20120825
  Serious: No
  Sender: FDA-Public Use
  Company Number: ADR-2012280038

PATIENT
  Sex: Female

DRUGS (1)
  1. TOPIRAMATE [Suspect]
     Indication: BIPOLAR DISORDER
     Dosage: 300 MG / DAY + ORAL
     Route: 048
     Dates: start: 20100701

REACTIONS (2)
  - EYE PAIN [None]
  - VISION BLURRED [None]
